FAERS Safety Report 7093860-X (Version None)
Quarter: 2010Q4

REPORT INFORMATION
  Report Type: 
  Country: None (occurrence: None)
  Receive Date: 20101110
  Receipt Date: 20101105
  Transmission Date: 20110411
  Serious: Yes (Hospitalization)
  Sender: FDA-Public Use
  Company Number: A0891452A

PATIENT
  Age: 33 Year
  Sex: Male

DRUGS (1)
  1. EPIVIR-HBV [Suspect]
     Dosage: 100MG UNKNOWN
     Route: 065
     Dates: start: 20100606

REACTIONS (1)
  - HOSPITALISATION [None]
